FAERS Safety Report 23482844 (Version 1)
Quarter: 2024Q1

REPORT INFORMATION
  Report Type: Spontaneous
  Country: US (occurrence: None)
  Receive Date: 20240205
  Receipt Date: 20240205
  Transmission Date: 20240410
  Serious: Yes (Hospitalization)
  Sender: FDA-Public Use
  Company Number: None

PATIENT
  Age: 67 Year
  Sex: Male

DRUGS (1)
  1. EPOPROSTENOL [Suspect]
     Active Substance: EPOPROSTENOL
     Indication: Pulmonary arterial hypertension
     Dosage: OTHER QUANTITY : NG/KG/MIN;?FREQUENCY : AS DIRECTED;?
     Route: 042
     Dates: start: 202305

REACTIONS (3)
  - Dyspnoea [None]
  - Hypervolaemia [None]
  - Respiratory disorder [None]

NARRATIVE: CASE EVENT DATE: 20240123
